FAERS Safety Report 5692190-8 (Version None)
Quarter: 2008Q2

REPORT INFORMATION
  Report Type: 
  Country: None (occurrence: None)
  Receive Date: 20080402
  Receipt Date: 20080331
  Transmission Date: 20081010
  Serious: Yes (Other)
  Sender: FDA-Public Use
  Company Number: B0513924A

PATIENT
  Age: 20 Year
  Sex: Male

DRUGS (3)
  1. SAWACILLIN [Suspect]
     Indication: TONSILLITIS
     Dosage: 250MG FOUR TIMES PER DAY
     Route: 048
     Dates: start: 20080222, end: 20080225
  2. CHINESE HERBAL MEDICINE [Suspect]
     Dosage: 2.5G THREE TIMES PER DAY
     Route: 048
     Dates: start: 20080222, end: 20080225
  3. POVIDONE IODINE [Concomitant]
     Indication: TONSILLITIS
     Dosage: 1.5ML FOUR TIMES PER DAY
     Route: 065
     Dates: start: 20080222, end: 20080224

REACTIONS (9)
  - EATING DISORDER [None]
  - GINGIVAL ERYTHEMA [None]
  - GINGIVAL SWELLING [None]
  - GLOSSODYNIA [None]
  - LIP SWELLING [None]
  - LYMPHADENOPATHY [None]
  - ORAL PAIN [None]
  - STOMATITIS [None]
  - TONGUE DISCOLOURATION [None]
